FAERS Safety Report 9748602 (Version 2)
Quarter: 2014Q1

REPORT INFORMATION
  Report Type: Report from Study
  Country: US (occurrence: US)
  Receive Date: 20131212
  Receipt Date: 20140306
  Transmission Date: 20141002
  Serious: Yes (Death, Other)
  Sender: FDA-Public Use
  Company Number: US-TEVA-450218USA

PATIENT
  Sex: Male

DRUGS (5)
  1. CLOZAPINE [Suspect]
     Indication: SCHIZOAFFECTIVE DISORDER BIPOLAR TYPE
     Dosage: 100 MILLIGRAM DAILY;
     Route: 048
     Dates: start: 20131021
  2. NAVANE [Concomitant]
     Dosage: 10 MILLIGRAM DAILY;
     Route: 048
  3. LITHIUM [Concomitant]
     Indication: DEPRESSION
     Dosage: 1300 MILLIGRAM DAILY;
     Route: 048
  4. ATIVAN [Concomitant]
     Dosage: 2 MILLIGRAM DAILY;
     Route: 048
  5. COGENTIN [Concomitant]
     Dosage: 2 MILLIGRAM DAILY;

REACTIONS (1)
  - Cardio-respiratory arrest [Fatal]
